FAERS Safety Report 10712892 (Version 1)
Quarter: 2015Q1

REPORT INFORMATION
  Report Type: Spontaneous
  Country: DE (occurrence: DE)
  Receive Date: 20150115
  Receipt Date: 20150115
  Transmission Date: 20150721
  Serious: Yes (Other)
  Sender: FDA-Public Use
  Company Number: DE-ROCHE-1499333

PATIENT
  Age: 86 Year
  Sex: Female
  Weight: 80 kg

DRUGS (1)
  1. ERIVEDGE [Suspect]
     Active Substance: VISMODEGIB
     Indication: BASAL CELL CARCINOMA
     Route: 048
     Dates: start: 20131101, end: 20140601

REACTIONS (7)
  - Ageusia [Unknown]
  - Muscle spasms [Recovered/Resolved]
  - Weight decreased [Recovered/Resolved]
  - Cachexia [Recovered/Resolved]
  - Dysgeusia [Recovered/Resolved]
  - Squamous cell carcinoma [Unknown]
  - Decreased appetite [Unknown]

NARRATIVE: CASE EVENT DATE: 20140201
